FAERS Safety Report 15785889 (Version 1)
Quarter: 2019Q1

REPORT INFORMATION
  Report Type: Other
  Country: PT (occurrence: PT)
  Receive Date: 20190103
  Receipt Date: 20190103
  Transmission Date: 20190417
  Serious: Yes (Hospitalization)
  Sender: FDA-Public Use
  Company Number: PT-ACTELION-A-CH2018-184264

PATIENT
  Age: 44 Year
  Sex: Male

DRUGS (1)
  1. BOSENTAN. [Suspect]
     Active Substance: BOSENTAN
     Indication: PULMONARY HYPERTENSION
     Route: 048

REACTIONS (8)
  - Polycythaemia [Recovering/Resolving]
  - Cyanosis [Recovering/Resolving]
  - C-reactive protein increased [Recovering/Resolving]
  - Dyspnoea [Recovering/Resolving]
  - Thrombocytopenia [Recovering/Resolving]
  - Pyrexia [Recovering/Resolving]
  - Concomitant disease aggravated [Recovering/Resolving]
  - Chest pain [Recovering/Resolving]
